FAERS Safety Report 6747665-7 (Version None)
Quarter: 2010Q2

REPORT INFORMATION
  Report Type: 
  Country: None (occurrence: None)
  Receive Date: 20100528
  Receipt Date: 20100519
  Transmission Date: 20101027
  Serious: Yes (Hospitalization, Other)
  Sender: FDA-Public Use
  Company Number: FR-ABBOTT-10P-056-0646198-00

PATIENT
  Age: 68 Year
  Sex: Male

DRUGS (2)
  1. HUMIRA [Suspect]
     Indication: PSORIATIC ARTHROPATHY
     Route: 058
     Dates: start: 20100325
  2. ENBREL [Suspect]
     Indication: PSORIATIC ARTHROPATHY
     Route: 058
     Dates: start: 20090828, end: 20100308

REACTIONS (7)
  - ABDOMINAL MASS [None]
  - EXTRINSIC VASCULAR COMPRESSION [None]
  - LEFT VENTRICULAR HYPERTROPHY [None]
  - MANTLE CELL LYMPHOMA [None]
  - OEDEMA PERIPHERAL [None]
  - RENAL FAILURE [None]
  - URETERAL DISORDER [None]
